FAERS Safety Report 14899966 (Version 1)
Quarter: 2018Q2

REPORT INFORMATION
  Report Type: Spontaneous
  Country: PL (occurrence: PL)
  Receive Date: 20180516
  Receipt Date: 20180516
  Transmission Date: 20180711
  Serious: Yes (Death)
  Sender: FDA-Public Use
  Company Number: PL-CLINIGEN GROUP PLC/ CLINIGEN HEALTHCARE LTD-PL-CLGN-18-00214

PATIENT
  Sex: Female
  Weight: 1.68 kg

DRUGS (2)
  1. FOSCARNET SODIUM. [Suspect]
     Active Substance: FOSCARNET SODIUM
     Indication: CONGENITAL CYTOMEGALOVIRUS INFECTION
     Route: 042
  2. GANCICLOVIR. [Concomitant]
     Active Substance: GANCICLOVIR
     Indication: CONGENITAL CYTOMEGALOVIRUS INFECTION

REACTIONS (2)
  - Cardiac failure [Fatal]
  - Drug ineffective for unapproved indication [Unknown]
